FAERS Safety Report 23615207 (Version 5)
Quarter: 2024Q4

REPORT INFORMATION
  Report Type: Spontaneous
  Country: BR (occurrence: BR)
  Receive Date: 20240311
  Receipt Date: 20241018
  Transmission Date: 20250115
  Serious: Yes (Other)
  Sender: CELLTRION
  Company Number: BR-CELLTRION INC.-2024BR005523

PATIENT

DRUGS (11)
  1. INFLIXIMAB [Suspect]
     Active Substance: INFLIXIMAB
     Indication: Ankylosing spondylitis
     Dosage: 4 AMPOULES OF 100 MG (400 MG TOTAL) EVERY 2 MONTHS
     Route: 042
     Dates: start: 20231227
  2. INFLIXIMAB [Suspect]
     Active Substance: INFLIXIMAB
     Dosage: 4 AMPOULES OF 100 MG (400 MG TOTAL) EVERY 2 MONTHS
     Route: 042
     Dates: start: 20240125
  3. INFLIXIMAB [Suspect]
     Active Substance: INFLIXIMAB
     Dosage: 4 AMPOULES OF 100 MG (400 MG TOTAL) EVERY 8 WEEKS
     Route: 042
     Dates: start: 20230517
  4. INFLIXIMAB [Suspect]
     Active Substance: INFLIXIMAB
     Dosage: 4 AMPOULES OF 100 MG (400 MG TOTAL) EVERY 8 WEEKS
     Route: 042
     Dates: start: 20240819
  5. AZULFIDINE [Concomitant]
     Active Substance: SULFASALAZINE
     Indication: Gastrointestinal inflammation
     Dosage: 2 TABLETS A DAY
     Route: 048
  6. AZULFIDINE [Concomitant]
     Active Substance: SULFASALAZINE
     Dosage: 1 TABLET A DAY
     Route: 048
  7. ETHINYL ESTRADIOL\LEVONORGESTREL [Concomitant]
     Active Substance: ETHINYL ESTRADIOL\LEVONORGESTREL
     Indication: Oral contraception
     Dosage: 1 TABLET A DAY, CYCLE 21 0.15 (LEVONORGESTREL)
     Route: 048
  8. SULFASALAZINE [Concomitant]
     Active Substance: SULFASALAZINE
     Dosage: 1 PILL A DAY, (START DATE: 2 YEARS AGO)
     Route: 048
  9. LEVONORGESTREL [Concomitant]
     Active Substance: LEVONORGESTREL
     Indication: Contraception
     Dosage: 1 PILL A DAY
     Route: 048
  10. VITAMIN D NOS [Concomitant]
     Active Substance: CHOLECALCIFEROL\ERGOCALCIFEROL
     Dosage: 1 TABLET A WEEK
  11. NAPROXEN [Concomitant]
     Active Substance: NAPROXEN
     Indication: Pain

REACTIONS (7)
  - Cholelithiasis [Recovering/Resolving]
  - Ankylosing spondylitis [Unknown]
  - Dengue fever [Recovering/Resolving]
  - Influenza [Recovering/Resolving]
  - Hypoaesthesia [Recovered/Resolved]
  - Intentional dose omission [Recovering/Resolving]
  - Overdose [Unknown]

NARRATIVE: CASE EVENT DATE: 20220504
